FAERS Safety Report 5483851-4 (Version None)
Quarter: 2007Q4

REPORT INFORMATION
  Report Type: 
  Country: None (occurrence: None)
  Receive Date: 20071012
  Receipt Date: 20071009
  Transmission Date: 20080405
  Serious: Yes (Death, Hospitalization)
  Sender: FDA-Public Use
  Company Number: FR-ASTRAZENECA-2007CG01440

PATIENT
  Age: 995 Month
  Sex: Female

DRUGS (10)
  1. OMEPRAZOLE [Suspect]
     Route: 048
     Dates: start: 20060715, end: 20070502
  2. ARICEPT [Suspect]
     Route: 048
     Dates: start: 20060715, end: 20070502
  3. SEROPRAM [Suspect]
     Route: 048
     Dates: start: 20060715, end: 20070502
  4. CETORNAN [Suspect]
     Route: 048
     Dates: start: 20070401, end: 20070502
  5. LASIX [Concomitant]
  6. HEMIGOXINE [Concomitant]
  7. ALDACTONE [Concomitant]
  8. INSULINE PROFIL 30 [Concomitant]
  9. NITRODERM [Concomitant]
  10. SILOMAT [Concomitant]
     Dates: start: 20070425, end: 20070429

REACTIONS (1)
  - CYTOLYTIC HEPATITIS [None]
